FAERS Safety Report 10923086 (Version 2)
Quarter: 2015Q2

REPORT INFORMATION
  Report Type: Spontaneous
  Country: FR (occurrence: FR)
  Receive Date: 20150317
  Receipt Date: 20150420
  Transmission Date: 20150821
  Serious: Yes (Death, Other)
  Sender: FDA-Public Use
  Company Number: FR-ELI_LILLY_AND_COMPANY-FR201503003208

PATIENT
  Age: 23 Year
  Sex: Male
  Weight: 56 kg

DRUGS (5)
  1. ZYPREXA [Suspect]
     Active Substance: OLANZAPINE
     Indication: PSYCHOTIC DISORDER
     Dosage: 10 MG, QD
     Route: 048
     Dates: start: 20141217
  2. SULFARLEM [Concomitant]
     Active Substance: ANETHOLTRITHION
     Indication: AGITATION
     Dosage: 25 MG, QD
     Route: 065
  3. SULFARLEM [Concomitant]
     Active Substance: ANETHOLTRITHION
     Indication: DELUSION
  4. NOZINAN                            /00038601/ [Concomitant]
     Active Substance: LEVOMEPROMAZINE
     Indication: DELUSION
  5. NOZINAN                            /00038601/ [Concomitant]
     Active Substance: LEVOMEPROMAZINE
     Indication: AGITATION
     Dosage: 100 MG, QD
     Route: 065
     Dates: start: 20141217

REACTIONS (2)
  - Completed suicide [Fatal]
  - Suicidal ideation [Not Recovered/Not Resolved]

NARRATIVE: CASE EVENT DATE: 20150113
